FAERS Safety Report 5395538-7 (Version None)
Quarter: 2007Q3

REPORT INFORMATION
  Report Type: 
  Country: None (occurrence: None)
  Receive Date: 20070724
  Receipt Date: 20070718
  Transmission Date: 20080115
  Serious: Yes (Hospitalization, Other)
  Sender: FDA-Public Use
  Company Number: HQWYE539727JAN06

PATIENT
  Sex: Female

DRUGS (4)
  1. RHINADVIL [Suspect]
     Indication: RHINITIS
     Dosage: ^3 TABLETS IN TOTAL^
     Route: 048
     Dates: start: 20051202, end: 20051202
  2. RHINADVIL [Suspect]
     Indication: PHARYNGITIS
  3. MAXILASE [Suspect]
     Indication: RHINITIS
     Dosage: ^3 TABLETS IN TOTAL^
     Route: 048
     Dates: start: 20051202, end: 20051202
  4. MAXILASE [Suspect]
     Indication: PHARYNGITIS

REACTIONS (5)
  - BLOOD IMMUNOGLOBULIN E INCREASED [None]
  - LEUKOCYTOCLASTIC VASCULITIS [None]
  - MALAISE [None]
  - OEDEMA PERIPHERAL [None]
  - URTICARIA [None]
